FAERS Safety Report 19891533 (Version 1)
Quarter: 2021Q3

REPORT INFORMATION
  Report Type: Other
  Country: DE (occurrence: DE)
  Receive Date: 20210928
  Receipt Date: 20210928
  Transmission Date: 20211014
  Serious: Yes (Other)
  Sender: FDA-Public Use
  Company Number: DE-B.BRAUN MEDICAL INC.-2118911

PATIENT
  Age: 53 Year
  Sex: Male

DRUGS (6)
  1. LIDOCAINE HYDROCHLORIDE AND DEXTROSE [Suspect]
     Active Substance: DEXTROSE\LIDOCAINE HYDROCHLORIDE
     Indication: VENTRICULAR TACHYCARDIA
     Route: 042
  2. MAGNESIUM [Concomitant]
     Active Substance: MAGNESIUM
  3. MEXILETINE [Concomitant]
     Active Substance: MEXILETINE
     Route: 042
  4. POTASSIUM [Concomitant]
     Active Substance: POTASSIUM
  5. MIDAZOLAM. [Concomitant]
     Active Substance: MIDAZOLAM
  6. AMIODARONE [Concomitant]
     Active Substance: AMIODARONE
     Route: 042

REACTIONS (1)
  - Drug ineffective [None]
